FAERS Safety Report 4617788-7 (Version None)
Quarter: 2005Q1

REPORT INFORMATION
  Report Type: 
  Country: None (occurrence: None)
  Receive Date: 20050324
  Receipt Date: 20050315
  Transmission Date: 20050727
  Serious: Yes (Other)
  Sender: FDA-Public Use
  Company Number: US-JNJFOC-20050303886

PATIENT
  Sex: Female

DRUGS (3)
  1. TYLENOL (CAPLET) [Suspect]
  2. TYLENOL (CAPLET) [Suspect]
     Indication: DRUG USE FOR UNKNOWN INDICATION
     Dosage: LARGE QUANTITY OF PILLS TAKEN OVER 20 YEARS AGO
  3. ALCOHOLIC BEVERAGE [Suspect]
     Indication: DRUG USE FOR UNKNOWN INDICATION
     Dosage: OVER 20 YEARS AGO

REACTIONS (2)
  - HEPATOCELLULAR DAMAGE [None]
  - INTENTIONAL MISUSE [None]
